FAERS Safety Report 9822294 (Version 5)
Quarter: 2014Q1

REPORT INFORMATION
  Report Type: Report from Study
  Country: NL (occurrence: NL)
  Receive Date: 20140116
  Receipt Date: 20140321
  Transmission Date: 20141002
  Serious: Yes (Other)
  Sender: FDA-Public Use
  Company Number: NL-BAXTER-2014BAX001061

PATIENT
  Age: 65 Year
  Sex: Female

DRUGS (3)
  1. KIOVIG, 100 MG/ML, OPLOSSING VOOR INFUSIE (30 G/300 ML) [Suspect]
     Indication: POLYNEUROPATHY
     Route: 065
     Dates: start: 20120822
  2. KIOVIG, 100 MG/ML, OPLOSSING VOOR INFUSIE (30 G/300 ML) [Suspect]
     Indication: OFF LABEL USE
     Route: 065
     Dates: start: 20131231
  3. KIOVIG, 100 MG/ML, OPLOSSING VOOR INFUSIE (30 G/300 ML) [Suspect]
     Route: 065
     Dates: start: 20140108

REACTIONS (2)
  - Tremor [Not Recovered/Not Resolved]
  - Sensory disturbance [Not Recovered/Not Resolved]
